FAERS Safety Report 10213002 (Version 2)
Quarter: 2014Q2

REPORT INFORMATION
  Report Type: Spontaneous
  Country: US (occurrence: US)
  Receive Date: 20140602
  Receipt Date: 20140616
  Transmission Date: 20141212
  Serious: Yes (Death, Hospitalization)
  Sender: FDA-Public Use
  Company Number: US-BRISTOL-MYERS SQUIBB COMPANY-20810131

PATIENT
  Age: 44 Year
  Sex: Male

DRUGS (1)
  1. YERVOY [Suspect]
     Indication: METASTATIC MALIGNANT MELANOMA
     Dosage: 269MG
     Route: 042
     Dates: start: 20140307, end: 20140328

REACTIONS (3)
  - Malignant neoplasm progression [Fatal]
  - Colitis [Unknown]
  - Cancer pain [Unknown]
